FAERS Safety Report 20224639 (Version 2)
Quarter: 2022Q1

REPORT INFORMATION
  Report Type: Spontaneous
  Country: CA (occurrence: CA)
  Receive Date: 20211223
  Receipt Date: 20220105
  Transmission Date: 20220423
  Serious: Yes (Other)
  Sender: FDA-Public Use
  Company Number: CA-TEVA-2021-CA-1989768

PATIENT
  Age: 23 Year
  Sex: Male
  Weight: 75.4 kg

DRUGS (1)
  1. IBUPROFEN [Suspect]
     Active Substance: IBUPROFEN
     Indication: Pain in extremity
     Dosage: PRESCRIBED DOSE:- IBUPROFEN 400MG EVERY 4H AS NEEDED FOR PAIN
     Route: 065

REACTIONS (3)
  - Muscle haemorrhage [Recovered/Resolved]
  - Haematoma muscle [Recovered/Resolved]
  - Intentional product misuse [Recovered/Resolved]
